FAERS Safety Report 14217551 (Version 1)
Quarter: 2017Q4

REPORT INFORMATION
  Report Type: Spontaneous
  Country: CN (occurrence: CN)
  Receive Date: 20171123
  Receipt Date: 20171123
  Transmission Date: 20180321
  Serious: Yes (Other)
  Sender: FDA-Public Use
  Company Number: CN-MERCK KGAA-2034953

PATIENT

DRUGS (1)
  1. NOVOTHYROX [Suspect]
     Active Substance: LEVOTHYROXINE SODIUM
     Indication: PRODUCT USED FOR UNKNOWN INDICATION

REACTIONS (10)
  - Muscular weakness [None]
  - Renal impairment [None]
  - Bone pain [None]
  - Hunger [None]
  - Cachexia [None]
  - Blood thyroid stimulating hormone decreased [None]
  - Pain in extremity [None]
  - Jaundice [None]
  - Overdose [None]
  - Terminal insomnia [None]
